FAERS Safety Report 20796179 (Version 1)
Quarter: 2022Q2

REPORT INFORMATION
  Report Type: Spontaneous
  Country: None (occurrence: CA)
  Receive Date: 20220506
  Receipt Date: 20220506
  Transmission Date: 20220721
  Serious: Yes (Death, Other)
  Sender: FDA-Public Use
  Company Number: CA-B.Braun Medical Inc.-2128546

PATIENT
  Age: 80 Year
  Sex: Male

DRUGS (35)
  1. ACETAMINOPHEN [Suspect]
     Active Substance: ACETAMINOPHEN
  2. ALLOPURINOL [Suspect]
     Active Substance: ALLOPURINOL
  3. AMIODARONE HYDROCHLORIDE [Suspect]
     Active Substance: AMIODARONE HYDROCHLORIDE
  4. ARANESP [Suspect]
     Active Substance: DARBEPOETIN ALFA
  5. ATROVENT [Suspect]
     Active Substance: IPRATROPIUM BROMIDE
  6. BETAMETHASONE [Suspect]
     Active Substance: BETAMETHASONE
  7. CALCITRIOL [Suspect]
     Active Substance: CALCITRIOL
  8. CEFTRIAXONE [Suspect]
     Active Substance: CEFTRIAXONE
  9. DEXTROSE [Suspect]
     Active Substance: DEXTROSE
  10. DOBUTAMINE [Suspect]
     Active Substance: DOBUTAMINE HYDROCHLORIDE
  11. DULCOLAX NOS [Suspect]
     Active Substance: BISACODYL OR DOCUSATE SODIUM
  12. FRAGMIN [Suspect]
     Active Substance: DALTEPARIN SODIUM
  13. GABAPENTIN [Suspect]
     Active Substance: GABAPENTIN
  14. HEPARIN SODIUM [Suspect]
     Active Substance: HEPARIN SODIUM
  15. HYDROMORPHONE [Suspect]
     Active Substance: HYDROMORPHONE
  16. INSULIN ASPART [Suspect]
     Active Substance: INSULIN ASPART
  17. LANSOPRAZOLE [Suspect]
     Active Substance: LANSOPRAZOLE
  18. LANTHANUM CARBONATE [Suspect]
     Active Substance: LANTHANUM CARBONATE
  19. POLYETHYLENE GLYCOLS [Suspect]
     Active Substance: POLYETHYLENE GLYCOLS
  20. MELATONIN [Suspect]
     Active Substance: MELATONIN
  21. METRONIDAZOLE [Suspect]
     Active Substance: METRONIDAZOLE
  22. NOREPINEPHRINE [Suspect]
     Active Substance: NOREPINEPHRINE
  23. ONDANSETRON [Suspect]
     Active Substance: ONDANSETRON
  24. PHYTONADIONE [Suspect]
     Active Substance: PHYTONADIONE
  25. POTASSIUM CHLORIDE [Suspect]
     Active Substance: POTASSIUM CHLORIDE
  26. PYRIDOXINE [Suspect]
     Active Substance: PYRIDOXINE
  27. ALBUTEROL [Suspect]
     Active Substance: ALBUTEROL
  28. SIMVASTATIN [Suspect]
     Active Substance: SIMVASTATIN
  29. SODIUM CITRATE [Suspect]
     Active Substance: SODIUM CITRATE
  30. SODIUM FERRIC GLUCONATE COMPLEX [Suspect]
     Active Substance: SODIUM FERRIC GLUCONATE COMPLEX
  31. SODIUM PHOSPHATES [Suspect]
     Active Substance: SODIUM PHOSPHATE, DIBASIC, ANHYDROUS\SODIUM PHOSPHATE, DIBASIC, HEPTAHYDRATE\SODIUM PHOSPHATE, MONOB
  32. TRESIBA [Suspect]
     Active Substance: INSULIN DEGLUDEC
  33. UMECLIDINIUM BROMIDE [Suspect]
     Active Substance: UMECLIDINIUM BROMIDE
  34. VASOPRESSIN [Suspect]
     Active Substance: VASOPRESSIN
  35. WARFARIN SODIUM [Suspect]
     Active Substance: WARFARIN SODIUM

REACTIONS (16)
  - Abdominal distension [Fatal]
  - Abdominal pain [Fatal]
  - Appendicitis [Fatal]
  - Appendicolith [Fatal]
  - Ascites [Fatal]
  - Cardiogenic shock [Fatal]
  - Constipation [Fatal]
  - General physical health deterioration [Fatal]
  - Hyponatraemia [Fatal]
  - Multiple organ dysfunction syndrome [Fatal]
  - Nausea [Fatal]
  - Off label use [Fatal]
  - Sepsis [Fatal]
  - Stress [Fatal]
  - Ventricular fibrillation [Fatal]
  - Vomiting [Fatal]
